FAERS Safety Report 18534199 (Version 1)
Quarter: 2020Q4

REPORT INFORMATION
  Report Type: Spontaneous
  Country: US (occurrence: US)
  Receive Date: 20201123
  Receipt Date: 20201123
  Transmission Date: 20210114
  Serious: Yes (Life-Threatening, Disabling)
  Sender: FDA-Public Use
  Company Number: None

PATIENT
  Age: 32 Year
  Sex: Male
  Weight: 90 kg

DRUGS (2)
  1. ARISTADA [Suspect]
     Active Substance: ARIPIPRAZOLE LAUROXIL
     Indication: PRODUCT USED FOR UNKNOWN INDICATION
     Dates: start: 20181101, end: 20201120
  2. CAPLYTA [Suspect]
     Active Substance: LUMATEPERONE

REACTIONS (2)
  - Amnesia [None]
  - Road traffic accident [None]

NARRATIVE: CASE EVENT DATE: 20201120
